FAERS Safety Report 6495567-6 (Version None)
Quarter: 2009Q4

REPORT INFORMATION
  Report Type: 
  Country: None (occurrence: None)
  Receive Date: 20091214
  Receipt Date: 20090714
  Transmission Date: 20100525
  Serious: No
  Sender: FDA-Public Use
  Company Number: US-BRISTOL-MYERS SQUIBB COMPANY-14702765

PATIENT
  Sex: Female

DRUGS (2)
  1. ABILIFY [Suspect]
  2. PAXIL [Suspect]

REACTIONS (1)
  - DYSURIA [None]
